FAERS Safety Report 7220200-5 (Version None)
Quarter: 2011Q1

REPORT INFORMATION
  Report Type: 
  Country: None (occurrence: None)
  Receive Date: 20110111
  Receipt Date: 20110107
  Transmission Date: 20110831
  Serious: Yes (Other)
  Sender: FDA-Public Use
  Company Number: US-AMGEN-USASP2010006040

PATIENT

DRUGS (2)
  1. ARANESP [Suspect]
     Indication: RENAL FAILURE CHRONIC
     Dosage: 40 A?G, Q2WK
     Dates: start: 20100818, end: 20101123
  2. ARANESP [Suspect]
     Dosage: 100 A?G, UNK
     Dates: start: 20101112

REACTIONS (3)
  - ASCITES [None]
  - DRUG INEFFECTIVE [None]
  - OEDEMA PERIPHERAL [None]
